FAERS Safety Report 8936268 (Version 1)
Quarter: 2012Q4

REPORT INFORMATION
  Report Type: 
  Country: US (occurrence: US)
  Receive Date: 20121130
  Receipt Date: 20121130
  Transmission Date: 20130627
  Serious: No
  Sender: FDA-Public Use
  Company Number: US-ABBOTT-12P-163-0975110-00

PATIENT
  Sex: Male

DRUGS (1)
  1. ANDROGEL 1.62% [Suspect]
     Indication: BLOOD TESTOSTERONE DECREASED
     Dates: end: 201108

REACTIONS (2)
  - Hair growth abnormal [Not Recovered/Not Resolved]
  - Gynaecomastia [Not Recovered/Not Resolved]
